FAERS Safety Report 25462557 (Version 1)
Quarter: 2025Q2

REPORT INFORMATION
  Report Type: Spontaneous
  Country: TR (occurrence: TR)
  Receive Date: 20250620
  Receipt Date: 20250620
  Transmission Date: 20250716
  Serious: Yes (Death, Other)
  Sender: SYMOGEN
  Company Number: TR-PARTNER THERAPEUTICS-2025PTX00052

PATIENT
  Sex: Female

DRUGS (9)
  1. SARGRAMOSTIM [Suspect]
     Active Substance: SARGRAMOSTIM
  2. DANYELZA [Suspect]
     Active Substance: NAXITAMAB-GQGK
     Indication: Neuroblastoma recurrent
     Route: 042
     Dates: start: 20250207, end: 20250207
  3. DANYELZA [Suspect]
     Active Substance: NAXITAMAB-GQGK
     Route: 042
     Dates: start: 20250327, end: 20250327
  4. IFOSFAMIDE [Suspect]
     Active Substance: IFOSFAMIDE
     Indication: Neuroblastoma
  5. CARBOPLATIN [Suspect]
     Active Substance: CARBOPLATIN
     Indication: Neuroblastoma
  6. ETOPOSIDE [Suspect]
     Active Substance: ETOPOSIDE
     Indication: Neuroblastoma
  7. VINCRISTINE [Suspect]
     Active Substance: VINCRISTINE
     Indication: Neuroblastoma
  8. IRINOTECAN [Suspect]
     Active Substance: IRINOTECAN
     Indication: Neuroblastoma
  9. TEMOZOLOMIDE [Suspect]
     Active Substance: TEMOZOLOMIDE
     Indication: Neuroblastoma

REACTIONS (1)
  - Acute myeloid leukaemia [Fatal]
